FAERS Safety Report 16201416 (Version 1)
Quarter: 2019Q2

REPORT INFORMATION
  Report Type: Spontaneous
  Country: CH (occurrence: CH)
  Receive Date: 20190416
  Receipt Date: 20190416
  Transmission Date: 20190711
  Serious: Yes (Life-Threatening)
  Sender: FDA-Public Use
  Company Number: CH-ROCHE-2303338

PATIENT
  Age: 49 Year
  Sex: Male

DRUGS (6)
  1. OMEPRAZOLE. [Concomitant]
     Active Substance: OMEPRAZOLE
     Dosage: TRAITEMENT HABITUEL
     Route: 048
  2. SIRDALUD [Concomitant]
     Active Substance: TIZANIDINE
     Dosage: TRAITEMENT HABITUEL
     Route: 048
  3. DIAPHIN [Suspect]
     Active Substance: DIACETYLMORPHINE HYDROCHLORIDE
     Indication: DRUG DEPENDENCE
     Dosage: DIAPHIN SR (SLOW RELEASE): 200 MG IN THE MORNING AND 400 MG AT NIGHT
     Route: 048
  4. DIAPHIN [Suspect]
     Active Substance: DIACETYLMORPHINE HYDROCHLORIDE
     Indication: DRUG DEPENDENCE
     Dosage: DATE OF BEGINNING OF UNKNOWN CATCHES 220 MG X 2
     Route: 041
  5. FLUCTINE [Concomitant]
     Active Substance: FLUOXETINE HYDROCHLORIDE
     Dosage: TRAITEMENT HABITUEL
     Route: 048
  6. VALIUM [Suspect]
     Active Substance: DIAZEPAM
     Indication: DRUG DEPENDENCE
     Route: 048

REACTIONS (9)
  - Respiratory depression [Recovered/Resolved]
  - Carotid pulse abnormal [Recovered/Resolved]
  - Respiratory arrest [Recovered/Resolved]
  - Bradycardia [Recovered/Resolved]
  - Loss of consciousness [Recovered/Resolved]
  - Bradypnoea [Recovered/Resolved]
  - Cyanosis [Recovered/Resolved]
  - Hyperhidrosis [Recovered/Resolved]
  - Overdose [Unknown]

NARRATIVE: CASE EVENT DATE: 20181206
